FAERS Safety Report 10876899 (Version 1)
Quarter: 2015Q1

REPORT INFORMATION
  Report Type: Spontaneous
  Country: US (occurrence: US)
  Receive Date: 20150302
  Receipt Date: 20150302
  Transmission Date: 20150721
  Serious: Yes (Hospitalization)
  Sender: FDA-Public Use
  Company Number: US-BEH-2015049153

PATIENT
  Age: 62 Year
  Sex: Female
  Weight: 86 kg

DRUGS (30)
  1. BACTRIM [Concomitant]
     Active Substance: SULFAMETHOXAZOLE\TRIMETHOPRIM
  2. DIPHENHYDRAMINE [Concomitant]
     Active Substance: DIPHENHYDRAMINE
  3. EPIPEN [Concomitant]
     Active Substance: EPINEPHRINE
  4. CVS VITAMIN D [Concomitant]
  5. CLOTRIMAZOLE. [Concomitant]
     Active Substance: CLOTRIMAZOLE
  6. ANORO INHALER [Concomitant]
  7. QVAR [Concomitant]
     Active Substance: BECLOMETHASONE DIPROPIONATE
  8. GLIPIZIDE ER [Concomitant]
     Active Substance: GLIPIZIDE
  9. ACTOS [Concomitant]
     Active Substance: PIOGLITAZONE HYDROCHLORIDE
  10. POTASSIUM CL ER [Concomitant]
  11. PREDNISONE. [Concomitant]
     Active Substance: PREDNISONE
  12. LASIX [Concomitant]
     Active Substance: FUROSEMIDE
  13. ZEMAIRA [Suspect]
     Active Substance: .ALPHA.1-PROTEINASE INHIBITOR HUMAN
     Indication: ALPHA-1 ANTI-TRYPSIN DEFICIENCY
     Route: 042
  14. FLONASE [Concomitant]
     Active Substance: FLUTICASONE PROPIONATE
  15. VERAPAMIL ER [Concomitant]
     Active Substance: VERAPAMIL HYDROCHLORIDE
  16. LIDOCAINE. [Concomitant]
     Active Substance: LIDOCAINE
  17. SODIUM CHLORIDE. [Concomitant]
     Active Substance: SODIUM CHLORIDE
  18. METFORMIN HCL [Concomitant]
     Active Substance: METFORMIN HYDROCHLORIDE
  19. LOVAZA [Concomitant]
     Active Substance: OMEGA-3-ACID ETHYL ESTERS
  20. DUONEB [Concomitant]
     Active Substance: ALBUTEROL SULFATE\IPRATROPIUM BROMIDE
  21. NYSTATIN. [Concomitant]
     Active Substance: NYSTATIN
  22. HEPARIN [Concomitant]
     Active Substance: HEPARIN SODIUM
  23. DIOVAN [Concomitant]
     Active Substance: VALSARTAN
  24. LIPITOR [Concomitant]
     Active Substance: ATORVASTATIN CALCIUM
  25. BUDESONIDE. [Concomitant]
     Active Substance: BUDESONIDE
  26. OMEPRAZOLE DR [Concomitant]
     Active Substance: OMEPRAZOLE
  27. DALIRESP [Concomitant]
     Active Substance: ROFLUMILAST
  28. GAMMAGARD [Concomitant]
     Active Substance: HUMAN IMMUNOGLOBULIN G
  29. CLARITIN [Concomitant]
     Active Substance: LORATADINE
  30. MAGNESIUM [Concomitant]
     Active Substance: MAGNESIUM

REACTIONS (2)
  - Clostridium difficile infection [Unknown]
  - Sepsis [Unknown]

NARRATIVE: CASE EVENT DATE: 201502
